FAERS Safety Report 8160786-X (Version None)
Quarter: 2012Q1

REPORT INFORMATION
  Report Type: 
  Country: None (occurrence: None)
  Receive Date: 20120223
  Receipt Date: 20120217
  Transmission Date: 20120608
  Serious: Yes (Hospitalization)
  Sender: FDA-Public Use
  Company Number: PHHY2011US60955

PATIENT
  Sex: Female

DRUGS (2)
  1. TOBI [Suspect]
     Indication: CYSTIC FIBROSIS
     Dosage: 300 MG, BID (28 DAYS ON AND 28 DAYS OFF)
     Dates: start: 20100604
  2. PULMOZYME [Concomitant]
     Dosage: UNK UKN, UNK

REACTIONS (2)
  - INFECTIVE PULMONARY EXACERBATION OF CYSTIC FIBROSIS [None]
  - UPPER RESPIRATORY TRACT INFECTION [None]
